FAERS Safety Report 10084522 (Version 1)
Quarter: 2014Q2

REPORT INFORMATION
  Report Type: Report from Study
  Country: BR (occurrence: BR)
  Receive Date: 20140417
  Receipt Date: 20140417
  Transmission Date: 20141212
  Serious: Yes (Other)
  Sender: FDA-Public Use
  Company Number: PHHY2014BR046930

PATIENT
  Sex: Female
  Weight: 65 kg

DRUGS (8)
  1. EXELON PATCH [Suspect]
     Indication: MENTAL DISORDER
     Dosage: 4.6 MG (9MG/5 CM2) DAILY
     Route: 062
  2. EXELON PATCH [Suspect]
     Dosage: 9.5 MG (18MG/10 CM2) DAILY
     Route: 062
  3. AAS [Concomitant]
     Indication: BLOOD PRESSURE ABNORMAL
     Dosage: UNK UKN, UNK
  4. CLINFAR [Concomitant]
     Dosage: UNK UKN, UNK
  5. ATENOLOL [Concomitant]
     Dosage: UNK UKN, UNK
  6. HYDROCHLOROTHIAZIDE [Concomitant]
     Dosage: UNK UKN, UNK
  7. ALLOPURINOL [Concomitant]
     Dosage: UNK UKN, UNK
  8. METFORMIN [Concomitant]
     Dosage: UNK UKN, UNK

REACTIONS (1)
  - Cataract [Recovered/Resolved]
